FAERS Safety Report 7860632-5 (Version None)
Quarter: 2011Q4

REPORT INFORMATION
  Report Type: 
  Country: None (occurrence: None)
  Receive Date: 20111026
  Receipt Date: 20111012
  Transmission Date: 20120403
  Serious: Yes (Other)
  Sender: FDA-Public Use
  Company Number: 2011MA015063

PATIENT
  Sex: Male

DRUGS (1)
  1. METOCLOPRAMIDE [Suspect]
     Dosage: 10 MG; PO
     Route: 048
     Dates: start: 19950101, end: 20100401

REACTIONS (4)
  - TARDIVE DYSKINESIA [None]
  - FAMILY STRESS [None]
  - INJURY [None]
  - EMOTIONAL DISORDER [None]
